FAERS Safety Report 11484721 (Version 1)
Quarter: 2015Q3

REPORT INFORMATION
  Report Type: Spontaneous
  Country: US (occurrence: US)
  Receive Date: 20150903
  Receipt Date: 20150903
  Transmission Date: 20151125
  Serious: Yes (Other)
  Sender: FDA-Public Use
  Company Number: US-ELI_LILLY_AND_COMPANY-US201208006468

PATIENT
  Age: 41 Year
  Sex: Female

DRUGS (2)
  1. CYMBALTA [Suspect]
     Active Substance: DULOXETINE HYDROCHLORIDE
     Dosage: 30 MG, QOD
  2. CYMBALTA [Suspect]
     Active Substance: DULOXETINE HYDROCHLORIDE
     Indication: BACK PAIN
     Dosage: 60 MG, BID

REACTIONS (8)
  - Hot flush [Unknown]
  - Seizure like phenomena [Unknown]
  - Influenza like illness [Unknown]
  - Paraesthesia [Unknown]
  - Vomiting [Unknown]
  - Decreased appetite [Unknown]
  - Asthenia [Unknown]
  - Fatigue [Unknown]
